FAERS Safety Report 14749574 (Version 5)
Quarter: 2018Q3

REPORT INFORMATION
  Report Type: Report from Study
  Country: US (occurrence: US)
  Receive Date: 20180411
  Receipt Date: 20180919
  Transmission Date: 20181010
  Serious: Yes (Congenital Anomaly)
  Sender: FDA-Public Use
  Company Number: US-TEVA-2018-US-862407

PATIENT
  Sex: Male
  Weight: 3.5 kg

DRUGS (13)
  1. OMEPRAZOLE. [Concomitant]
     Active Substance: OMEPRAZOLE
     Indication: GASTROOESOPHAGEAL REFLUX DISEASE
     Dosage: 20 MILLIGRAM DAILY;
     Route: 065
     Dates: end: 20160226
  2. ZYRTEC [Concomitant]
     Active Substance: CETIRIZINE HYDROCHLORIDE
     Indication: HYPERSENSITIVITY
     Dosage: 10 MILLIGRAM DAILY;
     Dates: start: 20000927
  3. PROVIGIL [Suspect]
     Active Substance: MODAFINIL
     Indication: NARCOLEPSY
     Dosage: 100 MILLIGRAM DAILY;
     Route: 065
     Dates: start: 20170908, end: 20180302
  4. FLOVENT [Concomitant]
     Active Substance: FLUTICASONE PROPIONATE
     Indication: ASTHMA
     Dosage: 88 MICROGRAM DAILY; 1 PUFF
     Dates: start: 20171013
  5. ALBUTEROL. [Concomitant]
     Active Substance: ALBUTEROL
     Indication: WHEEZING
  6. PYRIDOXIME HYDROCHLORIDE [Concomitant]
     Route: 065
     Dates: start: 2017
  7. PROAIR HFA [Concomitant]
     Active Substance: ALBUTEROL SULFATE
     Indication: ASTHMA
     Dosage: Q4, 2 PUFFS
     Dates: start: 20160912
  8. CETIRIZINE [Concomitant]
     Active Substance: CETIRIZINE HYDROCHLORIDE
     Indication: HYPERSENSITIVITY
     Route: 048
     Dates: start: 20000427
  9. FLONASE [Concomitant]
     Active Substance: FLUTICASONE PROPIONATE
     Indication: SEASONAL ALLERGY
     Dosage: 2 SPRAYS AT NOSTRIL
     Dates: start: 20160819
  10. PNV [Concomitant]
     Indication: PREGNANCY
     Dosage: 1 DOSAGE FORMS DAILY;
     Dates: start: 20171101
  11. ALBUTEROL. [Concomitant]
     Active Substance: ALBUTEROL
     Indication: ASTHMA
     Dosage: 10 G (90 BASE) MCG ACT INHALER, 2 PUFFS Q 4 PRN
     Route: 065
  12. ALBUTEROL. [Concomitant]
     Active Substance: ALBUTEROL
     Indication: DYSPNOEA
  13. FLOVENT [Concomitant]
     Active Substance: FLUTICASONE PROPIONATE
     Indication: SEASONAL ALLERGY
     Dosage: 100 MICROGRAM DAILY; SPRAY IN EACH NOSTRIL DAILY
     Dates: start: 20171013

REACTIONS (2)
  - Maternal exposure during pregnancy [Unknown]
  - Ankyloglossia congenital [Unknown]

NARRATIVE: CASE EVENT DATE: 20180727
